FAERS Safety Report 4300394-1 (Version None)
Quarter: 2004Q1

REPORT INFORMATION
  Report Type: 
  Country: None (occurrence: None)
  Receive Date: 20040220
  Receipt Date: 20031125
  Transmission Date: 20041129
  Serious: Yes (Other)
  Sender: FDA-Public Use
  Company Number: DE-GLAXOSMITHKLINE-D0042556A

PATIENT
  Age: 37 Year
  Sex: Female
  Weight: 75 kg

DRUGS (4)
  1. LAMICTAL [Suspect]
     Indication: EPILEPSY
     Dosage: 100MG PER DAY
     Route: 048
     Dates: start: 20030501
  2. SABRIL [Suspect]
     Indication: EPILEPSY
     Route: 048
     Dates: end: 20031115
  3. SODIUM VALPROATE [Concomitant]
     Indication: EPILEPSY
     Dosage: 1200MG PER DAY
     Route: 048
  4. INSULIN [Concomitant]

REACTIONS (1)
  - BLOOD GLUCOSE DECREASED [None]
